FAERS Safety Report 9313698 (Version 3)
Quarter: 2013Q4

REPORT INFORMATION
  Report Type: Report from Study
  Country: CO (occurrence: CO)
  Receive Date: 20130529
  Receipt Date: 20131126
  Transmission Date: 20140711
  Serious: Yes (Other)
  Sender: FDA-Public Use
  Company Number: CO-ROCHE-1229115

PATIENT
  Sex: Male

DRUGS (8)
  1. LUCENTIS [Suspect]
     Indication: DIABETIC RETINAL OEDEMA
     Dosage: REGIMEN1
     Route: 050
  2. LUCENTIS [Suspect]
     Indication: HAEMORRHAGE
     Dosage: REGIMEN2
     Route: 050
     Dates: start: 201212
  3. LUCENTIS [Suspect]
     Dosage: REGIMEN1
     Route: 050
     Dates: start: 20130427
  4. METFORMIN [Concomitant]
  5. LOSARTAN [Concomitant]
  6. HYDROCHLOROTHIAZIDE [Concomitant]
  7. INSULIN GLARGINE [Concomitant]
  8. LISPRO INSULIN [Concomitant]

REACTIONS (4)
  - Blindness [Unknown]
  - Eye haemorrhage [Recovered/Resolved]
  - Vision blurred [Recovering/Resolving]
  - Visual impairment [Recovering/Resolving]
